FAERS Safety Report 5297533-5 (Version None)
Quarter: 2007Q2

REPORT INFORMATION
  Report Type: 
  Country: None (occurrence: None)
  Receive Date: 20070409
  Receipt Date: 20070321
  Transmission Date: 20071010
  Serious: Yes (Other)
  Sender: FDA-Public Use
  Company Number: MPS1-10675

PATIENT
  Age: 5 Year
  Sex: Male
  Weight: 15 kg

DRUGS (3)
  1. ALDURAZYME [Suspect]
     Indication: MUCOPOLYSACCHARIDOSIS I
     Dosage: 0.58 MG/KG QWK IV
     Route: 042
     Dates: start: 20061110
  2. LEVOTIROXINE [Concomitant]
  3. LORATADINE [Concomitant]

REACTIONS (7)
  - CYANOSIS [None]
  - DIARRHOEA [None]
  - DYSPNOEA [None]
  - PYREXIA [None]
  - TACHYPNOEA [None]
  - TREMOR [None]
  - VOMITING [None]
